FAERS Safety Report 6309344-X (Version None)
Quarter: 2009Q3

REPORT INFORMATION
  Report Type: 
  Country: None (occurrence: None)
  Receive Date: 20090814
  Receipt Date: 20090810
  Transmission Date: 20100115
  Serious: Yes (Other)
  Sender: FDA-Public Use
  Company Number: US-ASTRAZENECA-2009SE07578

PATIENT
  Sex: Female

DRUGS (2)
  1. CRESTOR [Suspect]
     Route: 048
  2. ZOCOR [Suspect]

REACTIONS (2)
  - ABASIA [None]
  - PAIN IN EXTREMITY [None]
